FAERS Safety Report 24066579 (Version 1)
Quarter: 2024Q3

REPORT INFORMATION
  Report Type: Spontaneous
  Country: FR (occurrence: None)
  Receive Date: 20240709
  Receipt Date: 20240709
  Transmission Date: 20241016
  Serious: Yes (Death, Other)
  Sender: ASTRAZENECA
  Company Number: 2024A156078

PATIENT
  Age: 67 Year
  Sex: Male

DRUGS (1)
  1. DURVALUMAB [Suspect]
     Active Substance: DURVALUMAB
     Indication: Non-small cell lung cancer
     Dates: start: 20191125, end: 20201012

REACTIONS (4)
  - Metastases to adrenals [Fatal]
  - Metastases to gastrointestinal tract [Fatal]
  - Haematotoxicity [Unknown]
  - Oesophagitis [Unknown]

NARRATIVE: CASE EVENT DATE: 20210826
